FAERS Safety Report 8949040 (Version 1)
Quarter: 2012Q4

REPORT INFORMATION
  Report Type: Report from Study
  Country: US (occurrence: US)
  Receive Date: 20121206
  Receipt Date: 20121206
  Transmission Date: 20130627
  Serious: Yes (Life-Threatening, Other)
  Sender: FDA-Public Use
  Company Number: US-BIOGENIDEC-2012BI057344

PATIENT
  Age: 55 Year
  Sex: Female
  Weight: 87 kg

DRUGS (6)
  1. TYSABRI [Suspect]
     Indication: MULTIPLE SCLEROSIS
     Route: 042
     Dates: start: 20080812
  2. TOPAMAX [Concomitant]
     Indication: CONVULSION
     Dates: start: 20060428
  3. TOPAMAX [Concomitant]
     Indication: CONVULSION
  4. ADDERALL XR [Concomitant]
     Indication: FATIGUE
     Dates: start: 20080827
  5. FLEXERIL [Concomitant]
     Indication: MYALGIA
     Dates: start: 20080314
  6. FLEXERIL [Concomitant]
     Indication: MUSCLE TIGHTNESS
     Dates: start: 20080314

REACTIONS (1)
  - Convulsion [Recovered/Resolved]
